FAERS Safety Report 9746206 (Version 1)
Quarter: 2013Q4

REPORT INFORMATION
  Report Type: Spontaneous
  Country: FR (occurrence: FR)
  Receive Date: 20131211
  Receipt Date: 20131211
  Transmission Date: 20140711
  Serious: Yes (Hospitalization)
  Sender: FDA-Public Use
  Company Number: PHHY2013FR141020

PATIENT
  Age: 44 Year
  Sex: Female

DRUGS (1)
  1. ANAGRELIDE [Suspect]
     Indication: ESSENTIAL THROMBOCYTHAEMIA
     Dosage: 2 MG, QD
     Dates: start: 201204

REACTIONS (9)
  - Arteriosclerosis coronary artery [Recovered/Resolved]
  - Myocarditis [Recovered/Resolved]
  - Coronary artery thrombosis [Recovered/Resolved]
  - Condition aggravated [Recovered/Resolved]
  - Hypokinesia [Recovered/Resolved]
  - Acute myocardial infarction [Recovered/Resolved]
  - Myocardial ischaemia [Recovered/Resolved]
  - Ejection fraction decreased [Recovered/Resolved]
  - Chest pain [Recovered/Resolved]
